FAERS Safety Report 6859324 (Version 2)
Quarter: 2019Q4

REPORT INFORMATION
  Report Type: Spontaneous
  Country: FR (occurrence: FR)
  Receive Date: 20081218
  Receipt Date: 20191231
  Transmission Date: 20200122
  Serious: Yes (Hospitalization, Other)
  Sender: FDA-Public Use
  Company Number: FR-AVENTIS-200814368FR

PATIENT
  Age: 61 Year
  Sex: Male

DRUGS (10)
  1. CLAFORAN [Suspect]
     Active Substance: CEFOTAXIME SODIUM
     Indication: SEPSIS
     Dosage: UNK UNK,QD
     Route: 042
     Dates: start: 20080215, end: 20080310
  2. TAVANIC [Concomitant]
     Active Substance: LEVOFLOXACIN
     Indication: INTERVERTEBRAL DISCITIS
  3. CLAFORAN [Suspect]
     Active Substance: CEFOTAXIME SODIUM
     Indication: ABSCESS
  4. CLINDAMYCIN HYDROCHLORIDE. [Concomitant]
     Active Substance: CLINDAMYCIN HYDROCHLORIDE
     Indication: INTERVERTEBRAL DISCITIS
  5. CLAFORAN [Suspect]
     Active Substance: CEFOTAXIME SODIUM
     Indication: INTERVERTEBRAL DISCITIS
  6. CLINDAMYCIN HYDROCHLORIDE. [Concomitant]
     Active Substance: CLINDAMYCIN HYDROCHLORIDE
     Indication: SEPSIS
     Dosage: UNK
     Route: 042
     Dates: start: 20080215, end: 20080310
  7. CLINDAMYCIN HYDROCHLORIDE. [Concomitant]
     Active Substance: CLINDAMYCIN HYDROCHLORIDE
     Indication: ABSCESS
  8. TAVANIC [Concomitant]
     Active Substance: LEVOFLOXACIN
     Indication: SEPSIS
     Dosage: UNK
     Dates: start: 20080211, end: 20080214
  9. TAVANIC [Concomitant]
     Active Substance: LEVOFLOXACIN
     Indication: ABSCESS
  10. VANCOMYCIN [Concomitant]
     Active Substance: VANCOMYCIN
     Dosage: UNK
     Dates: start: 20080211

REACTIONS (2)
  - Dermatitis exfoliative generalised [Recovered/Resolved]
  - Eosinophilia [Recovered/Resolved]

NARRATIVE: CASE EVENT DATE: 20080305
